FAERS Safety Report 4301880-0 (Version None)
Quarter: 2004Q1

REPORT INFORMATION
  Report Type: 
  Country: None (occurrence: None)
  Receive Date: 20040218
  Receipt Date: 20030520
  Transmission Date: 20041129
  Serious: Yes (Other)
  Sender: FDA-Public Use
  Company Number: 2003160821US

PATIENT
  Sex: Male

DRUGS (1)
  1. ARTHROTEC [Suspect]
     Dosage: 75 MG, WEEKLY, ORAL; 75 MG, BID, ORAL
     Route: 048

REACTIONS (1)
  - RASH GENERALISED [None]
